FAERS Safety Report 5218875-5 (Version None)
Quarter: 2007Q1

REPORT INFORMATION
  Report Type: 
  Country: None (occurrence: None)
  Receive Date: 20070125
  Receipt Date: 20070118
  Transmission Date: 20070707
  Serious: Yes (Hospitalization)
  Sender: FDA-Public Use
  Company Number: US-BRACCO-BDI-009047

PATIENT
  Sex: Female

DRUGS (2)
  1. ISOVUE-300 [Suspect]
     Route: 037
  2. ISOVUE-300 [Suspect]
     Indication: BACK PAIN
     Route: 037

REACTIONS (2)
  - CSF WHITE BLOOD CELL COUNT POSITIVE [None]
  - RED BLOOD CELLS CSF POSITIVE [None]
